FAERS Safety Report 7360382-8 (Version None)
Quarter: 2011Q1

REPORT INFORMATION
  Report Type: 
  Country: None (occurrence: None)
  Receive Date: 20110318
  Receipt Date: 20110302
  Transmission Date: 20110831
  Serious: Yes (Hospitalization, Other)
  Sender: FDA-Public Use
  Company Number: US-BAYER-2011-015120

PATIENT
  Sex: Male

DRUGS (15)
  1. OLMESARTAN [Concomitant]
     Dosage: 2 DF, UNK
     Route: 048
  2. CLAFORAN [Concomitant]
     Dosage: 2 G, UNK
  3. ALCOWIPES [Concomitant]
  4. SALINE [Concomitant]
     Dosage: 2.5 ML, UNK
     Route: 042
  5. FENOFIBRATE [Concomitant]
     Dosage: 145 MG, UNK
     Route: 048
  6. GLYBURIDE [Concomitant]
     Dosage: 5 MG, UNK
     Route: 048
  7. ZOLPIDEM [Concomitant]
     Dosage: 2 DF, UNK
     Route: 048
  8. BETASERON [Suspect]
     Indication: RELAPSING-REMITTING MULTIPLE SCLEROSIS
     Dosage: 0.3 MG/1.2 ML
     Route: 058
     Dates: start: 20040101
  9. PAMELOR [Concomitant]
     Dosage: 2 DF, UNK
     Route: 048
  10. TRAZODONE [Concomitant]
     Dosage: 2 DF, UNK
     Route: 048
  11. MORPHINE [Concomitant]
     Dosage: 30 ML, UNK
     Route: 042
  12. PROTONIX [Concomitant]
     Dosage: 40 MG, UNK
  13. HEPARIN [Concomitant]
     Dosage: UNK
  14. SODIUM CHLORIDE [Concomitant]
     Dosage: 1000 ML, UNK
     Route: 042
  15. TOPROL-XL [Concomitant]
     Dosage: 50 MG, UNK

REACTIONS (7)
  - INJECTION SITE PAIN [None]
  - INJECTION SITE INFECTION [None]
  - THROMBOSIS [None]
  - HOT FLUSH [None]
  - OEDEMA PERIPHERAL [None]
  - GAIT DISTURBANCE [None]
  - CHEST PAIN [None]
